FAERS Safety Report 13231844 (Version 1)
Quarter: 2017Q1

REPORT INFORMATION
  Report Type: Spontaneous
  Country: US (occurrence: US)
  Receive Date: 20170214
  Receipt Date: 20170214
  Transmission Date: 20170428
  Serious: No
  Sender: FDA-Public Use
  Company Number: US-BAYER-2016-222884

PATIENT
  Sex: Male
  Weight: 74 kg

DRUGS (9)
  1. CLARITIN [Suspect]
     Active Substance: LORATADINE
     Indication: NASOPHARYNGITIS
  2. XANAX [Concomitant]
     Active Substance: ALPRAZOLAM
     Dosage: UNK
  3. CLARITIN [Suspect]
     Active Substance: LORATADINE
     Indication: HYPERSENSITIVITY
     Dosage: 1 DF, BID
     Dates: end: 20161120
  4. TAMSULOSIN [Concomitant]
     Active Substance: TAMSULOSIN
     Dosage: UNK
  5. MILK OF MAGNESIA [Suspect]
     Active Substance: MAGNESIUM HYDROXIDE
     Indication: GASTROENTERITIS
     Dosage: 0.5 TEASPOON
     Route: 048
     Dates: start: 1940
  6. PSEUDOEPHEDRINE [Concomitant]
     Active Substance: PSEUDOEPHEDRINE
     Dosage: UNK
  7. MILK OF MAGNESIA [Suspect]
     Active Substance: MAGNESIUM HYDROXIDE
     Indication: INFLUENZA
  8. FINASTERIDE. [Concomitant]
     Active Substance: FINASTERIDE
     Dosage: UNK
  9. DICLOXACILLIN [Concomitant]
     Active Substance: DICLOXACILLIN
     Dosage: UNK

REACTIONS (2)
  - Underdose [Unknown]
  - Product use issue [Unknown]
